FAERS Safety Report 6359113-X (Version None)
Quarter: 2009Q3

REPORT INFORMATION
  Report Type: 
  Country: None (occurrence: None)
  Receive Date: 20090917
  Receipt Date: 20071219
  Transmission Date: 20100115
  Serious: Yes (Hospitalization, Other)
  Sender: FDA-Public Use
  Company Number: US-ASTRAZENECA-2007UW02053

PATIENT
  Age: 15736 Day
  Sex: Female
  Weight: 107.5 kg

DRUGS (32)
  1. SEROQUEL [Suspect]
     Indication: BIPOLAR DISORDER
     Dosage: 125-250 MG
     Route: 048
     Dates: start: 19990201, end: 20060201
  2. SEROQUEL [Suspect]
     Indication: POST-TRAUMATIC STRESS DISORDER
     Dosage: 125-250 MG
     Route: 048
     Dates: start: 19990201, end: 20060201
  3. SEROQUEL [Suspect]
     Indication: DEPRESSION
     Dosage: 125-250 MG
     Route: 048
     Dates: start: 19990201, end: 20060201
  4. SEROQUEL [Suspect]
     Dosage: 25 MG TO 200 MG
     Route: 048
     Dates: start: 20000724
  5. SEROQUEL [Suspect]
     Dosage: 25 MG TO 200 MG
     Route: 048
     Dates: start: 20000724
  6. SEROQUEL [Suspect]
     Dosage: 25 MG TO 200 MG
     Route: 048
     Dates: start: 20000724
  7. RISPERDAL [Concomitant]
     Dates: start: 19980101
  8. ZYPREXA/SYMBYAX (OLANZAPINE) [Concomitant]
     Dates: start: 19980101
  9. DEPAKOTE [Concomitant]
     Dates: start: 20010101
  10. FUROSEMIDE [Concomitant]
     Dosage: 10 MG TO 40 MG
     Route: 048
     Dates: start: 20020711
  11. LORATADINE [Concomitant]
     Indication: ANXIETY
     Route: 048
     Dates: start: 20040426
  12. METHYLPHENIDATE HCL [Concomitant]
     Dosage: 10 MG TABLET DISPENSED
     Dates: start: 20051103
  13. ZESTRIL [Concomitant]
     Dosage: 10 MG TO 20 MG
     Route: 048
     Dates: start: 20020119
  14. ZYRTEC [Concomitant]
     Route: 048
     Dates: start: 20030219
  15. ATIVAN [Concomitant]
     Indication: ANXIETY
     Dosage: 0.5 MG TO 3 MG
     Route: 048
     Dates: start: 20011117
  16. SERZONE [Concomitant]
     Indication: DEPRESSION
     Dosage: 100 MG TABLET DISPENSED
     Dates: start: 20010913
  17. AMARYL [Concomitant]
     Dosage: 1 MG TO 2 MG
     Route: 048
     Dates: start: 20010913
  18. AMBIEN [Concomitant]
     Route: 048
     Dates: start: 20011112
  19. LANTUS [Concomitant]
     Dates: start: 20060131
  20. GLUCOPHAGE [Concomitant]
     Route: 048
     Dates: start: 20020106
  21. ACTOS [Concomitant]
     Dosage: 45 MG TABLET DISPENSED
     Dates: start: 20060301
  22. PREVACID [Concomitant]
     Dosage: 15 MG TO 30 MG
     Dates: start: 20000724
  23. CELEXA [Concomitant]
     Dosage: 20 MG TO 40 MG
     Dates: start: 20000419
  24. TRAZODONE [Concomitant]
     Dosage: 50 MG TABLET DISPENSED
     Dates: start: 20000424
  25. EFFEXOR [Concomitant]
     Dosage: 75 MG TO 300 MG
     Route: 048
     Dates: start: 19991202
  26. PRILOSEC [Concomitant]
     Dates: start: 19991021
  27. SPIRONOLACTONE [Concomitant]
     Dates: start: 19991021
  28. TOPAMAX [Concomitant]
     Dosage: 25 MG TO 125 MG
     Dates: start: 20011230
  29. PULMICORT-100 [Concomitant]
     Dosage: 2 PUFFS TWICE A DAY
     Route: 055
     Dates: start: 20011230
  30. DEPAKOTE ER [Concomitant]
     Dosage: 250 MG TO 1500 MG
     Route: 048
     Dates: start: 20000724
  31. TRICOR [Concomitant]
     Dosage: 250 MG TO 1500 MG
     Route: 048
     Dates: start: 20000724
  32. CELEBREX [Concomitant]
     Dates: start: 20010913

REACTIONS (23)
  - ARTHROSCOPY [None]
  - ASTHMA [None]
  - BLOOD CHOLESTEROL INCREASED [None]
  - BLOOD TRIGLYCERIDES INCREASED [None]
  - CARPAL TUNNEL DECOMPRESSION [None]
  - CELLULITIS [None]
  - CELLULITIS ORBITAL [None]
  - CONJUNCTIVITIS [None]
  - CONVULSION [None]
  - DIABETIC NEUROPATHY [None]
  - GASTROOESOPHAGEAL REFLUX DISEASE [None]
  - HOSPITALISATION [None]
  - HYPERTENSION [None]
  - HYPOGLYCAEMIA [None]
  - LIPOMA EXCISION [None]
  - NEUROPATHY PERIPHERAL [None]
  - OSTEOARTHRITIS [None]
  - PETIT MAL EPILEPSY [None]
  - PHLEBITIS SUPERFICIAL [None]
  - SHOULDER ARTHROPLASTY [None]
  - SLEEP APNOEA SYNDROME [None]
  - TYPE 1 DIABETES MELLITUS [None]
  - TYPE 2 DIABETES MELLITUS [None]
